FAERS Safety Report 18172274 (Version 1)
Quarter: 2020Q3

REPORT INFORMATION
  Report Type: Spontaneous
  Country: CN (occurrence: CN)
  Receive Date: 20200820
  Receipt Date: 20200820
  Transmission Date: 20201103
  Serious: Yes (Other)
  Sender: FDA-Public Use
  Company Number: CN-DRREDDYS-GPV/CHN/20/0126086

PATIENT
  Age: 51 Year
  Sex: Female
  Weight: 52 kg

DRUGS (2)
  1. OLANZAPINE. [Suspect]
     Active Substance: OLANZAPINE
     Indication: PSYCHOTIC DISORDER
     Dosage: 5.000000MG,QD
     Route: 048
     Dates: start: 20200416, end: 20200629
  2. ESCITALOPRAM OXALATE TABLETS [Concomitant]
     Indication: DEPRESSED MOOD
     Dosage: 10.000000MG,QD
     Route: 048
     Dates: start: 20200416, end: 20200812

REACTIONS (1)
  - Ocular hypertension [Recovered/Resolved]

NARRATIVE: CASE EVENT DATE: 20200418
